FAERS Safety Report 8301223-1 (Version None)
Quarter: 2012Q2

REPORT INFORMATION
  Report Type: 
  Country: None (occurrence: None)
  Receive Date: 20120420
  Receipt Date: 20120420
  Transmission Date: 20120825
  Serious: Yes (Other)
  Sender: FDA-Public Use
  Company Number: None

PATIENT
  Age: 31 Year
  Sex: Female
  Weight: 53.977 kg

DRUGS (1)
  1. MEFLOQUINE HYDROCHLORIDE [Suspect]
     Indication: PROPHYLAXIS
     Dosage: 250MG
     Route: 048
     Dates: start: 20120228, end: 20120320

REACTIONS (5)
  - FEELING ABNORMAL [None]
  - SUICIDAL IDEATION [None]
  - MAJOR DEPRESSION [None]
  - CRYING [None]
  - ABNORMAL DREAMS [None]
